FAERS Safety Report 11091947 (Version 1)
Quarter: 2015Q2

REPORT INFORMATION
  Report Type: Report from Study
  Country: US (occurrence: US)
  Receive Date: 20150505
  Receipt Date: 20150505
  Transmission Date: 20150821
  Serious: Yes (Death)
  Sender: FDA-Public Use
  Company Number: US-ACTELION-A-US2015-117308

PATIENT
  Age: 69 Year
  Sex: Female

DRUGS (13)
  1. IRBESARTAN. [Concomitant]
     Active Substance: IRBESARTAN
  2. AVAPRO [Concomitant]
     Active Substance: IRBESARTAN
  3. PROMETRIUM [Concomitant]
     Active Substance: PROGESTERONE
  4. AMLODIPINE [Concomitant]
     Active Substance: AMLODIPINE BESYLATE
  5. SENSIPAR [Concomitant]
     Active Substance: CINACALCET HYDROCHLORIDE
  6. LEVOTHYROXINE [Concomitant]
     Active Substance: LEVOTHYROXINE
  7. METHOTREXATE [Concomitant]
     Active Substance: METHOTREXATE
  8. OMEPRAZOLE. [Concomitant]
     Active Substance: OMEPRAZOLE
  9. MACITENTAN [Suspect]
     Active Substance: MACITENTAN
     Indication: SYSTEMIC LUPUS ERYTHEMATOSUS
     Dosage: 10 MG, UNK
     Route: 048
     Dates: start: 20150129
  10. NASONEX [Concomitant]
     Active Substance: MOMETASONE FUROATE
     Dosage: 50 MCG, UNK
  11. SPIRONOLACTONE. [Concomitant]
     Active Substance: SPIRONOLACTONE
     Dosage: 25 MG, UNK
  12. LASIX [Concomitant]
     Active Substance: FUROSEMIDE
  13. ASPIRIN. [Concomitant]
     Active Substance: ASPIRIN
     Dosage: 81 MG, UNK

REACTIONS (1)
  - Death [Fatal]

NARRATIVE: CASE EVENT DATE: 20150426
